FAERS Safety Report 22284056 (Version 4)
Quarter: 2023Q2

REPORT INFORMATION
  Report Type: Spontaneous
  Country: US (occurrence: US)
  Receive Date: 20230504
  Receipt Date: 20230602
  Transmission Date: 20230722
  Serious: No
  Sender: FDA-Public Use
  Company Number: US-AMGEN-USASP2023075540

PATIENT
  Age: 78 Year
  Sex: Female

DRUGS (2)
  1. REPATHA [Suspect]
     Active Substance: EVOLOCUMAB
     Indication: Hyperlipidaemia
     Dosage: 140 MILLIGRAM, Q2WK
     Route: 058
  2. REPATHA [Suspect]
     Active Substance: EVOLOCUMAB
     Indication: Arteriosclerosis
     Dosage: 140 MILLIGRAM, Q2WK
     Route: 058

REACTIONS (4)
  - Wrong technique in product usage process [Unknown]
  - Incorrect dose administered by device [Unknown]
  - Injection site pain [Unknown]
  - Product communication issue [Unknown]

NARRATIVE: CASE EVENT DATE: 20230501
